FAERS Safety Report 25677365 (Version 1)
Quarter: 2025Q3

REPORT INFORMATION
  Report Type: Spontaneous
  Country: US (occurrence: US)
  Receive Date: 20250813
  Receipt Date: 20250813
  Transmission Date: 20251020
  Serious: No
  Sender: SANOFI AVENTIS
  Company Number: US-SA-2025SA237930

PATIENT
  Age: 58 Year
  Sex: Male
  Weight: 113.39 kg

DRUGS (8)
  1. DUPIXENT [Suspect]
     Active Substance: DUPILUMAB
     Indication: Dermatitis atopic
     Dosage: 300 MG, QOW
     Route: 058
  2. VITAMIN D3 [Concomitant]
     Active Substance: CHOLECALCIFEROL
  3. ACYCLOVIR [Concomitant]
     Active Substance: ACYCLOVIR
  4. PYRIDOXINE [Concomitant]
     Active Substance: PYRIDOXINE
  5. VITAMIN B12 [Concomitant]
     Active Substance: CYANOCOBALAMIN
  6. ELIQUIS [Concomitant]
     Active Substance: APIXABAN
  7. DEXAMETHASONE [Concomitant]
     Active Substance: DEXAMETHASONE
  8. POMALYST [Concomitant]
     Active Substance: POMALIDOMIDE

REACTIONS (1)
  - Pruritus [Not Recovered/Not Resolved]

NARRATIVE: CASE EVENT DATE: 20250101
